FAERS Safety Report 8352193-1 (Version None)
Quarter: 2012Q2

REPORT INFORMATION
  Report Type: 
  Country: None (occurrence: None)
  Receive Date: 20120511
  Receipt Date: 20120501
  Transmission Date: 20120825
  Serious: Yes (Hospitalization, Other)
  Sender: FDA-Public Use
  Company Number: US-SANOFI-AVENTIS-2012SA030358

PATIENT
  Age: 67 Year
  Sex: Male

DRUGS (3)
  1. APIDRA [Suspect]
     Dosage: IN THE EVENINGS DOSE:15 UNIT(S)
     Route: 058
  2. LANTUS [Suspect]
     Dosage: DOSE:80 UNIT(S)
     Route: 058
  3. APIDRA [Suspect]
     Dosage: PER SLIDING SCALE
     Route: 058

REACTIONS (6)
  - BLINDNESS UNILATERAL [None]
  - CARDIAC FAILURE CONGESTIVE [None]
  - VISUAL IMPAIRMENT [None]
  - BLOOD GLUCOSE INCREASED [None]
  - RENAL FAILURE [None]
  - RETINAL HAEMORRHAGE [None]
